FAERS Safety Report 9085483 (Version 8)
Quarter: 2013Q3

REPORT INFORMATION
  Report Type: Spontaneous
  Country: US (occurrence: US)
  Receive Date: 20130131
  Receipt Date: 20130722
  Transmission Date: 20140515
  Serious: Yes (Hospitalization, Other)
  Sender: FDA-Public Use
  Company Number: US-009507513-1204USA02197

PATIENT
  Sex: Female

DRUGS (13)
  1. FOSAMAX [Suspect]
     Indication: OSTEOPOROSIS
     Dosage: 70 MG, QW
     Route: 048
     Dates: start: 20040706, end: 20080212
  2. FOSAMAX [Suspect]
     Dosage: 10 MG, UNK
     Route: 048
  3. ALENDRONATE SODIUM [Suspect]
     Indication: OSTEOPOROSIS
     Dosage: 70 MG, QW
     Dates: start: 20080214, end: 20091103
  4. CALCIUM (UNSPECIFIED) [Concomitant]
     Dosage: 1200 MG, QD
     Dates: start: 1984
  5. ASCORBIC ACID [Concomitant]
     Dosage: 1000 MG, QD
     Dates: start: 1980
  6. VITAMIN E [Concomitant]
     Dosage: 400 MG, QD
     Dates: start: 1990
  7. LIPITOR [Concomitant]
     Indication: BLOOD CHOLESTEROL INCREASED
     Dosage: 40 DF, QD
     Dates: start: 1970
  8. PREMARIN [Concomitant]
     Indication: HORMONE REPLACEMENT THERAPY
     Dosage: 0.3 MG, BIW
     Dates: start: 1964
  9. NEXIUM [Concomitant]
     Indication: GASTROOESOPHAGEAL REFLUX DISEASE
     Dosage: UNK
     Dates: start: 1990
  10. MINOXIDIL [Concomitant]
     Indication: HYPERTENSION
     Dosage: 2.5 DF, BID
     Dates: start: 2005
  11. LASIX (FUROSEMIDE SODIUM) [Concomitant]
     Indication: HYPERTENSION
     Dosage: 40 DF, BID
     Dates: start: 2000
  12. TENEX [Concomitant]
     Indication: HYPERTENSION
     Dosage: UNK
     Dates: start: 1992
  13. SYNTHROID [Concomitant]
     Indication: HYPOTHYROIDISM
     Dosage: 100 DF, QD

REACTIONS (48)
  - Femur fracture [Unknown]
  - Intramedullary rod insertion [Unknown]
  - Knee arthroplasty [Unknown]
  - Cholecystectomy [Unknown]
  - Cerebrovascular accident [Unknown]
  - Eyelid ptosis [Unknown]
  - Spinal laminectomy [Unknown]
  - Renal failure chronic [Not Recovered/Not Resolved]
  - Shoulder arthroplasty [Unknown]
  - Shoulder arthroplasty [Unknown]
  - Rotator cuff repair [Unknown]
  - Fracture [Unknown]
  - Injury [Unknown]
  - Hyperthyroidism [Unknown]
  - Depression [Unknown]
  - Tooth extraction [Unknown]
  - Oral surgery [Unknown]
  - Spondylolisthesis [Unknown]
  - Angiopathy [Unknown]
  - Pain [Unknown]
  - Cataract operation [Unknown]
  - Transient ischaemic attack [Unknown]
  - Transient ischaemic attack [Unknown]
  - Carotid artery stenosis [Unknown]
  - Abdominal wall haematoma [Unknown]
  - Knee operation [Unknown]
  - Upper-airway cough syndrome [Unknown]
  - Arthropathy [Unknown]
  - Cardiomegaly [Unknown]
  - Tooth extraction [Unknown]
  - Angiopathy [Unknown]
  - Tooth fracture [Unknown]
  - Cardiac murmur [Unknown]
  - Medical device removal [Unknown]
  - Tendon injury [Unknown]
  - Epiphyseal fracture [Unknown]
  - Rib fracture [Unknown]
  - Bursitis [Unknown]
  - Tendonitis [Unknown]
  - Muscle strain [Unknown]
  - Spinal osteoarthritis [Unknown]
  - Azotaemia [Unknown]
  - Treatment failure [Unknown]
  - Back pain [Not Recovered/Not Resolved]
  - Drug ineffective [Unknown]
  - Headache [Unknown]
  - Muscle spasms [Unknown]
  - Arthralgia [Unknown]
